FAERS Safety Report 9866887 (Version 1)
Quarter: 2014Q1

REPORT INFORMATION
  Report Type: Spontaneous
  Country: US (occurrence: None)
  Receive Date: 20140203
  Receipt Date: 20140203
  Transmission Date: 20141002
  Serious: Yes (Disabling)
  Sender: FDA-Public Use
  Company Number: None

PATIENT
  Age: 41 Year
  Sex: Female
  Weight: 72.58 kg

DRUGS (1)
  1. CIPROFLOXACIN [Suspect]
     Indication: ANAL ABSCESS
     Dosage: TAKEN BY MOUTH
     Dates: start: 20130731, end: 20130802

REACTIONS (29)
  - Pain [None]
  - Paraesthesia [None]
  - Burning sensation [None]
  - Hyperaesthesia [None]
  - Paraesthesia [None]
  - Spinal pain [None]
  - Chest discomfort [None]
  - Palpitations [None]
  - Eye pain [None]
  - Eye irritation [None]
  - Vision blurred [None]
  - Nausea [None]
  - Vomiting [None]
  - Diarrhoea [None]
  - Dizziness [None]
  - Chills [None]
  - Cold sweat [None]
  - Dry skin [None]
  - Arthropathy [None]
  - Erythema [None]
  - Muscular weakness [None]
  - Muscle twitching [None]
  - Sensation of heaviness [None]
  - Balance disorder [None]
  - Tremor [None]
  - Grip strength decreased [None]
  - Fatigue [None]
  - Hepatomegaly [None]
  - Hepatic enzyme increased [None]
